FAERS Safety Report 25207208 (Version 2)
Quarter: 2025Q2

REPORT INFORMATION
  Report Type: Spontaneous
  Country: ES (occurrence: ES)
  Receive Date: 20250417
  Receipt Date: 20250509
  Transmission Date: 20250716
  Serious: Yes (Hospitalization, Other)
  Sender: AUROBINDO
  Company Number: ES-ELI_LILLY_AND_COMPANY-ES202503018511

PATIENT
  Age: 70 Year
  Sex: Female
  Weight: 59 kg

DRUGS (4)
  1. FULVESTRANT [Suspect]
     Active Substance: FULVESTRANT
     Indication: Invasive ductal breast carcinoma
     Route: 065
     Dates: start: 20250218
  2. FULVESTRANT [Suspect]
     Active Substance: FULVESTRANT
     Indication: Metastases to central nervous system
  3. ABEMACICLIB [Suspect]
     Active Substance: ABEMACICLIB
     Indication: Invasive ductal breast carcinoma
     Dosage: 300 MILLIGRAM, ONCE A DAY
     Route: 065
     Dates: start: 20250218
  4. ABEMACICLIB [Suspect]
     Active Substance: ABEMACICLIB
     Indication: Metastases to central nervous system
     Dosage: 200 MILLIGRAM, ONCE A DAY
     Route: 065

REACTIONS (5)
  - Colitis [Recovered/Resolved]
  - Intestinal perforation [Recovered/Resolved]
  - Neutropenia [Unknown]
  - Diverticulitis [Unknown]
  - Thrombocytopenia [Unknown]

NARRATIVE: CASE EVENT DATE: 20250311
